FAERS Safety Report 10081543 (Version 1)
Quarter: 2014Q2

REPORT INFORMATION
  Report Type: Spontaneous
  Country: US (occurrence: US)
  Receive Date: 20140416
  Receipt Date: 20140416
  Transmission Date: 20141212
  Serious: Yes (Hospitalization, Other)
  Sender: FDA-Public Use
  Company Number: US-PFIZER INC-2014103061

PATIENT
  Age: 77 Year
  Sex: Male
  Weight: 79.37 kg

DRUGS (6)
  1. REVATIO [Suspect]
     Indication: PULMONARY FIBROSIS
     Dosage: 20 MG, 3X/DAY
  2. IMURAN [Concomitant]
     Dosage: 100 MG, DAILY
  3. PREDNISONE [Concomitant]
     Dosage: 10 MG, DAILY
  4. SULFAMETHOXAZOLE W/TRIMETHOPRIM [Concomitant]
     Dosage: 800/160MG THREE TIMES A WEEK (MONDAY, WEDNESDAY AND FRIDAY)
  5. REMICADE [Concomitant]
     Dosage: 100 MG, EVERY 8 WEEKS
     Route: 042
  6. TRAVATAN Z [Concomitant]
     Dosage: 1 DROP IN EACH EYE DAILY
     Route: 047

REACTIONS (1)
  - Nephrolithiasis [Unknown]
